FAERS Safety Report 5486988-9 (Version None)
Quarter: 2007Q4

REPORT INFORMATION
  Report Type: 
  Country: None (occurrence: None)
  Receive Date: 20071016
  Receipt Date: 20071001
  Transmission Date: 20080405
  Serious: Yes (Other)
  Sender: FDA-Public Use
  Company Number: JP-ELI_LILLY_AND_COMPANY-JP200710002059

PATIENT
  Age: 73 Year
  Sex: Male

DRUGS (1)
  1. GEMCITABINE HCL [Suspect]
     Indication: GALLBLADDER CANCER
     Dosage: UNK, OTHER
     Route: 042
     Dates: start: 20070810

REACTIONS (1)
  - ENTEROCOLITIS [None]
